FAERS Safety Report 20305260 (Version 5)
Quarter: 2022Q1

REPORT INFORMATION
  Report Type: Report from Study
  Country: CN (occurrence: CN)
  Receive Date: 20220106
  Receipt Date: 20220325
  Transmission Date: 20220423
  Serious: Yes (Hospitalization, Disabling)
  Sender: FDA-Public Use
  Company Number: CN-BoehringerIngelheim-2021-BI-146211

PATIENT
  Age: 86 Year
  Sex: Male
  Weight: 58 kg

DRUGS (2)
  1. ALTEPLASE [Suspect]
     Active Substance: ALTEPLASE
     Indication: Cerebral infarction
     Dosage: 52.2ML?MOST RECENT DOSE RECEIVED ON :29/DEC/2021
     Route: 042
     Dates: start: 20211229
  2. ALTEPLASE [Suspect]
     Active Substance: ALTEPLASE
     Indication: Ischaemic stroke

REACTIONS (1)
  - Haemorrhagic transformation stroke [Recovered/Resolved]

NARRATIVE: CASE EVENT DATE: 20211230
